FAERS Safety Report 7558292-6 (Version None)
Quarter: 2011Q2

REPORT INFORMATION
  Report Type: 
  Country: None (occurrence: None)
  Receive Date: 20110620
  Receipt Date: 20110617
  Transmission Date: 20111010
  Serious: Yes (Life-Threatening, Hospitalization)
  Sender: FDA-Public Use
  Company Number: ES-ABBOTT-11P-144-0732396-00

PATIENT
  Age: 74 Year
  Sex: Male

DRUGS (6)
  1. RILAST FORTE TURBUHALER 320/9 MICROGRAMOS POLVO PARA INHALACION [Concomitant]
     Indication: PRODUCT USED FOR UNKNOWN INDICATION
     Dosage: UNKNOWN
     Route: 065
     Dates: start: 20070101, end: 20110101
  2. EPROSARTAN MESYLATE [Suspect]
     Indication: HYPERTENSION
     Dosage: 600MG/12.5MG DAILY
     Route: 048
     Dates: start: 20080101, end: 20110101
  3. AMIODARONE HCL [Suspect]
     Indication: ATRIAL FIBRILLATION
     Dosage: 200MG DAILY
     Route: 048
     Dates: start: 20070101, end: 20110113
  4. TRIAZOLAM [Concomitant]
     Indication: PRODUCT USED FOR UNKNOWN INDICATION
     Dosage: UNKNOWN
     Route: 065
     Dates: start: 20080101, end: 20110613
  5. NEBIVOLOL HCL [Suspect]
     Indication: HYPERTENSION
     Dosage: 25MG DAILY
     Route: 048
     Dates: start: 20070101, end: 20110113
  6. SINTROM COMPRIMIDOS [Concomitant]
     Indication: PRODUCT USED FOR UNKNOWN INDICATION
     Dates: start: 20080101

REACTIONS (4)
  - CARDIO-RESPIRATORY ARREST [None]
  - RENAL FAILURE ACUTE [None]
  - HYPERKALAEMIA [None]
  - RESPIRATORY TRACT INFECTION [None]
